FAERS Safety Report 16545326 (Version 1)
Quarter: 2019Q3

REPORT INFORMATION
  Report Type: Spontaneous
  Country: US (occurrence: US)
  Receive Date: 20190708
  Receipt Date: 20190708
  Transmission Date: 20191004
  Serious: Yes (Other)
  Sender: FDA-Public Use
  Company Number: None

PATIENT
  Age: 5 Year
  Sex: Female
  Weight: 18 kg

DRUGS (3)
  1. RANITIDINE. [Suspect]
     Active Substance: RANITIDINE
     Indication: GASTROOESOPHAGEAL REFLUX DISEASE
     Dosage: ?          QUANTITY:5 ML;?
     Route: 048
     Dates: start: 20190620, end: 20190708
  2. RANITIDINE. [Suspect]
     Active Substance: RANITIDINE
     Indication: COUGH
     Dosage: ?          QUANTITY:5 ML;?
     Route: 048
     Dates: start: 20190620, end: 20190708
  3. RANITIDINE. [Suspect]
     Active Substance: RANITIDINE
     Indication: OROPHARYNGEAL PAIN
     Dosage: ?          QUANTITY:5 ML;?
     Route: 048
     Dates: start: 20190620, end: 20190708

REACTIONS (1)
  - Gastrooesophageal reflux disease [None]

NARRATIVE: CASE EVENT DATE: 20190708
